FAERS Safety Report 4381304-8 (Version None)
Quarter: 2004Q2

REPORT INFORMATION
  Report Type: 
  Country: None (occurrence: None)
  Receive Date: 20040617
  Receipt Date: 20040617
  Transmission Date: 20050107
  Serious: Yes (Other)
  Sender: FDA-Public Use
  Company Number: None

PATIENT
  Age: 60 Year
  Sex: Female
  Weight: 77.1115 kg

DRUGS (1)
  1. BEXTRA [Suspect]
     Indication: TENDONITIS
     Dosage: 1 DAILY
     Dates: start: 20040518, end: 20040104

REACTIONS (6)
  - ARTHRALGIA [None]
  - BACK PAIN [None]
  - INFLUENZA LIKE ILLNESS [None]
  - PAIN IN EXTREMITY [None]
  - PAIN IN JAW [None]
  - SKIN IRRITATION [None]
